FAERS Safety Report 7318929-3 (Version None)
Quarter: 2011Q1

REPORT INFORMATION
  Report Type: 
  Country: None (occurrence: None)
  Receive Date: 20110228
  Receipt Date: 20110217
  Transmission Date: 20110831
  Serious: Yes (Hospitalization, Disabling)
  Sender: FDA-Public Use
  Company Number: US-ELI_LILLY_AND_COMPANY-US201102005379

PATIENT
  Sex: Female

DRUGS (4)
  1. LANTUS [Concomitant]
  2. LIPITOR [Concomitant]
  3. PLAVIX [Concomitant]
  4. HUMALOG [Suspect]
     Indication: DIABETES MELLITUS
     Dosage: UNK, AS NEEDED
     Dates: start: 19990101

REACTIONS (3)
  - OSTEOARTHRITIS [None]
  - FALL [None]
  - GAIT DISTURBANCE [None]
